FAERS Safety Report 5913726-5 (Version None)
Quarter: 2008Q4

REPORT INFORMATION
  Report Type: 
  Country: None (occurrence: None)
  Receive Date: 20081007
  Receipt Date: 20080924
  Transmission Date: 20090506
  Serious: No
  Sender: FDA-Public Use
  Company Number: 004099

PATIENT
  Sex: Female

DRUGS (2)
  1. PLETAL [Suspect]
     Dosage: 100 MG, ORAL
     Route: 048
     Dates: start: 20070122
  2. NAFTIDROFURYL OXALATE (NAFTIDROFURYL OXALATE) [Concomitant]

REACTIONS (1)
  - HYPERTENSIVE CRISIS [None]
